FAERS Safety Report 11611781 (Version 2)
Quarter: 2017Q2

REPORT INFORMATION
  Report Type: Spontaneous
  Country: US (occurrence: US)
  Receive Date: 20151008
  Receipt Date: 20170627
  Transmission Date: 20170829
  Serious: Yes (Other)
  Sender: FDA-Public Use
  Company Number: US-PFIZER INC-2015332080

PATIENT
  Age: 9 Year
  Sex: Male

DRUGS (2)
  1. VFEND [Suspect]
     Active Substance: VORICONAZOLE
     Dosage: UNK
     Route: 048
  2. VFEND [Suspect]
     Active Substance: VORICONAZOLE
     Indication: ASPERGILLUS INFECTION
     Dosage: UNK
     Route: 048
     Dates: start: 201305

REACTIONS (5)
  - Pseudoporphyria [Recovering/Resolving]
  - Drug level below therapeutic [Recovering/Resolving]
  - Photosensitivity reaction [Recovering/Resolving]
  - Onycholysis [Recovering/Resolving]
  - Cheilitis [Recovering/Resolving]
